FAERS Safety Report 4958590-6 (Version None)
Quarter: 2006Q1

REPORT INFORMATION
  Report Type: 
  Country: None (occurrence: None)
  Receive Date: 20060127
  Receipt Date: 20050117
  Transmission Date: 20060701
  Serious: Yes (Hospitalization)
  Sender: FDA-Public Use
  Company Number: 05-01-0070

PATIENT
  Age: 58 Year
  Sex: Male

DRUGS (2)
  1. CLOZAPINE [Suspect]
     Indication: ANXIETY
     Dosage: 300MG QD, ORAL
     Route: 048
     Dates: start: 20041201, end: 20050106
  2. CLOZAPINE [Suspect]
     Indication: SCHIZOPHRENIA
     Dosage: 300MG QD, ORAL
     Route: 048
     Dates: start: 20041201, end: 20050106

REACTIONS (1)
  - PRE-EXISTING DISEASE [None]
